FAERS Safety Report 17988822 (Version 1)
Quarter: 2020Q3

REPORT INFORMATION
  Report Type: Spontaneous
  Country: AU (occurrence: AU)
  Receive Date: 20200707
  Receipt Date: 20200707
  Transmission Date: 20201103
  Serious: Yes (Hospitalization, Other)
  Sender: FDA-Public Use
  Company Number: AU-BRISTOL-MYERS SQUIBB COMPANY-BMS-2020-053863

PATIENT
  Age: 72 Year
  Sex: Male

DRUGS (4)
  1. IPILIMUMAB [Concomitant]
     Active Substance: IPILIMUMAB
     Indication: METASTATIC MALIGNANT MELANOMA
     Dosage: 267.5 MILLIGRAM
     Route: 042
     Dates: start: 20191018
  2. IMO?2125 [Concomitant]
     Active Substance: TILSOTOLIMOD SODIUM
     Indication: METASTATIC MALIGNANT MELANOMA
     Dosage: 8 MILLIGRAM
     Route: 036
     Dates: start: 20191011
  3. APIXABAN [Suspect]
     Active Substance: APIXABAN
     Indication: PRODUCT USED FOR UNKNOWN INDICATION
     Dosage: 5 MILLIGRAM
     Route: 048
     Dates: start: 20190710, end: 20191126
  4. PANADOL [Concomitant]
     Active Substance: ACETAMINOPHEN
     Indication: TREMOR
     Dosage: 1000 MILLIGRAM
     Route: 065
     Dates: start: 20191011

REACTIONS (2)
  - Intracranial tumour haemorrhage [Not Recovered/Not Resolved]
  - Immune-mediated hepatitis [Unknown]

NARRATIVE: CASE EVENT DATE: 20191121
